FAERS Safety Report 9605045 (Version 2)
Quarter: 2013Q4

REPORT INFORMATION
  Report Type: Spontaneous
  Country: US (occurrence: US)
  Receive Date: 20131008
  Receipt Date: 20131114
  Transmission Date: 20140711
  Serious: No
  Sender: FDA-Public Use
  Company Number: US-JNJFOC-20131001478

PATIENT
  Sex: Female

DRUGS (1)
  1. DURAGESIC [Suspect]
     Indication: PAIN
     Dosage: 2 PATCHES OF 75 UG/HR
     Route: 062

REACTIONS (4)
  - Drug administered at inappropriate site [Not Recovered/Not Resolved]
  - Wrong technique in drug usage process [Not Recovered/Not Resolved]
  - Drug dose omission [Unknown]
  - Product quality issue [Unknown]
